FAERS Safety Report 9882529 (Version 1)
Quarter: 2014Q1

REPORT INFORMATION
  Report Type: Spontaneous
  Country: US (occurrence: US)
  Receive Date: 20140207
  Receipt Date: 20140207
  Transmission Date: 20141002
  Serious: No
  Sender: FDA-Public Use
  Company Number: US-BAYER-2014-014210

PATIENT
  Age: 43 Year
  Sex: Male
  Weight: 111 kg

DRUGS (4)
  1. ALEVE CAPLET [Suspect]
     Indication: ARTHRALGIA
     Dosage: 2-3 DF, PRN
     Route: 048
  2. ALEVE CAPLET [Suspect]
     Indication: INFLAMMATION
  3. ALEVE LIQUID GELS [Suspect]
     Indication: ARTHRALGIA
     Dosage: 2-3 DF, PRN
     Route: 048
  4. ALEVE LIQUID GELS [Suspect]
     Indication: INFLAMMATION

REACTIONS (4)
  - Intentional drug misuse [None]
  - Drug ineffective [None]
  - Incorrect drug administration duration [None]
  - Extra dose administered [None]
